FAERS Safety Report 9443502 (Version 1)
Quarter: 2013Q3

REPORT INFORMATION
  Report Type: Spontaneous
  Country: CA (occurrence: CA)
  Receive Date: 20130806
  Receipt Date: 20130806
  Transmission Date: 20140515
  Serious: Yes (Hospitalization)
  Sender: FDA-Public Use
  Company Number: CHPA2013CA012256

PATIENT
  Age: 51 Year
  Sex: Female

DRUGS (2)
  1. HABITROL [Suspect]
     Indication: SMOKING CESSATION THERAPY
     Dosage: 14 MG, UNK
     Route: 062
     Dates: start: 201306
  2. HABITROL [Suspect]
     Dosage: 21 MG, UNK
     Route: 062

REACTIONS (4)
  - Anxiety [Unknown]
  - Stress [Unknown]
  - Malaise [Recovered/Resolved]
  - Feeling jittery [Recovered/Resolved]
